FAERS Safety Report 9520926 (Version 1)
Quarter: 2013Q1

REPORT INFORMATION
  Report Type: Spontaneous
  Country: US (occurrence: None)
  Receive Date: 20130305
  Receipt Date: 20130305
  Transmission Date: 20140127
  Serious: Yes (Hospitalization, Other)
  Sender: FDA-Public Use
  Company Number: 163-21880-12080074

PATIENT
  Age: 77 Year
  Sex: Male
  Weight: 97.07 kg

DRUGS (8)
  1. REVLIMID [Suspect]
     Indication: MYELODYSPLASTIC SYNDROME
     Dosage: 10 MG, 1 IN 1 D, PO
     Route: 048
     Dates: start: 20120702
  2. LEVEMIR (INSULIN DETEMIR) (SOLUTION) [Concomitant]
  3. METOPROLOL TARTRATE (METOPROLOL TARTRATE) (25 MILLIGRAM, TABLETS)? [Concomitant]
  4. PRANDIN (REPAGLINIDE) (2 MILLIGRAM, TABLETS) [Concomitant]
  5. TORSEMIDE (TORASEMIDE) (20 MILLIGRAM, TABLETS)? [Concomitant]
  6. CALCIUM +D (OS CAL) (200 MILLIGRAM, TABLETS)? [Concomitant]
  7. CENTRUM SILVER (CENTRUM SILVER) (TABLETS) [Concomitant]
  8. COLACE (DOCUSATE SODIUM) (UNKNOWN) [Concomitant]

REACTIONS (4)
  - Fatigue [None]
  - Dyspnoea [None]
  - Thrombocytopenia [None]
  - Polyarthritis [None]
